FAERS Safety Report 22040819 (Version 2)
Quarter: 2023Q2

REPORT INFORMATION
  Report Type: Report from Study
  Country: US (occurrence: US)
  Receive Date: 20230227
  Receipt Date: 20230618
  Transmission Date: 20230722
  Serious: Yes (Other)
  Sender: FDA-Public Use
  Company Number: US-ARGENX-2023-ARGX-US000567

PATIENT
  Age: 25 Year
  Sex: Female

DRUGS (1)
  1. VYVGART [Suspect]
     Active Substance: EFGARTIGIMOD ALFA-FCAB
     Indication: Myasthenia gravis
     Dosage: UNK
     Route: 042
     Dates: start: 20230208

REACTIONS (7)
  - Tachycardia [Unknown]
  - Fatigue [Unknown]
  - Myasthenia gravis [Unknown]
  - Asthenia [Unknown]
  - Visual impairment [Unknown]
  - Auditory disorder [Unknown]
  - Facial discomfort [Unknown]

NARRATIVE: CASE EVENT DATE: 20230208
